FAERS Safety Report 16693310 (Version 1)
Quarter: 2019Q3

REPORT INFORMATION
  Report Type: Report from Study
  Country: JP (occurrence: JP)
  Receive Date: 20190812
  Receipt Date: 20190812
  Transmission Date: 20191004
  Serious: Yes (Other)
  Sender: FDA-Public Use
  Company Number: JP-PFIZER INC-2019339879

PATIENT
  Age: 14 Year
  Sex: Female

DRUGS (11)
  1. INFLIXIMAB [Suspect]
     Active Substance: INFLIXIMAB
     Indication: KERATOPATHY
  2. CYCLOSPORINE. [Concomitant]
     Active Substance: CYCLOSPORINE
     Indication: IRIDOCYCLITIS
     Dosage: UNK
  3. METHOTREXATE. [Concomitant]
     Active Substance: METHOTREXATE
     Indication: IRIDOCYCLITIS
     Dosage: UNK
  4. INFLIXIMAB [Suspect]
     Active Substance: INFLIXIMAB
     Indication: IRIDOCYCLITIS
  5. PREDNISOLONE. [Concomitant]
     Active Substance: PREDNISOLONE
     Indication: JUVENILE IDIOPATHIC ARTHRITIS
  6. CYCLOSPORINE. [Concomitant]
     Active Substance: CYCLOSPORINE
     Indication: JUVENILE IDIOPATHIC ARTHRITIS
  7. INFLIXIMAB [Suspect]
     Active Substance: INFLIXIMAB
     Indication: EYE INFLAMMATION
     Dosage: 5 MG/KG, UNK (INFUSIONS, EVERY 8 WEEKS)
  8. INFLIXIMAB [Suspect]
     Active Substance: INFLIXIMAB
     Indication: IRIS ADHESIONS
  9. INFLIXIMAB [Suspect]
     Active Substance: INFLIXIMAB
     Indication: CATARACT
  10. PREDNISOLONE. [Concomitant]
     Active Substance: PREDNISOLONE
     Indication: IRIDOCYCLITIS
     Dosage: UNK
  11. METHOTREXATE. [Concomitant]
     Active Substance: METHOTREXATE
     Indication: JUVENILE IDIOPATHIC ARTHRITIS

REACTIONS (3)
  - Macular oedema [Recovered/Resolved]
  - Eye inflammation [Recovered/Resolved]
  - Drug ineffective [Recovered/Resolved]
